FAERS Safety Report 21568292 (Version 2)
Quarter: 2022Q4

REPORT INFORMATION
  Report Type: Spontaneous
  Country: US (occurrence: US)
  Receive Date: 20221108
  Receipt Date: 20221129
  Transmission Date: 20230112
  Serious: No
  Sender: FDA-Public Use
  Company Number: US-PFIZER INC-202201279800

PATIENT
  Age: 97 Year
  Sex: Male
  Weight: 79.909 kg

DRUGS (10)
  1. PAXLOVID [Suspect]
     Active Substance: NIRMATRELVIR\RITONAVIR
     Indication: COVID-19 treatment
     Dosage: [PF-07321332 300 MG]/[RITONAVIR 100 MG]; 2X/DAY
     Route: 048
     Dates: start: 20221028, end: 20221031
  2. ASPIRIN [Concomitant]
     Active Substance: ASPIRIN
     Dosage: 81 MG
     Dates: start: 20220505
  3. LASIX [Concomitant]
     Active Substance: FUROSEMIDE
     Indication: Cardiac failure congestive
     Dosage: MONDAY, WEDNESDAY, FRIDAY
     Dates: start: 20220201
  4. SYNTHROID [Concomitant]
     Active Substance: LEVOTHYROXINE SODIUM
     Indication: Hypothyroidism
     Dosage: UNK, DAILY
     Dates: start: 20220217
  5. RAMIPRIL [Concomitant]
     Active Substance: RAMIPRIL
     Dosage: UNK, DAILY
     Dates: start: 20220315
  6. RENACID [Concomitant]
     Dosage: MONDAY, WEDNESDAY, FRIDAY
     Dates: start: 20220320
  7. COLACE [Concomitant]
     Active Substance: DOCUSATE SODIUM
     Indication: Constipation
     Dosage: UNK, 2X/DAY
     Dates: start: 20200622
  8. TAMSULOSIN [Concomitant]
     Active Substance: TAMSULOSIN
     Indication: Urinary retention
     Dosage: UNK, DAILY
     Dates: start: 20201117
  9. UTISTAT [Concomitant]
     Dosage: 30 ML, DAILY
     Dates: start: 20210210
  10. VITA B12 [VITAMIN B12 NOS] [Concomitant]
     Dosage: UNK, DAILY
     Dates: start: 20200218

REACTIONS (3)
  - Lip swelling [Recovered/Resolved]
  - Swollen tongue [Recovered/Resolved]
  - Swelling face [Recovered/Resolved]

NARRATIVE: CASE EVENT DATE: 20221031
